FAERS Safety Report 8356543-1 (Version None)
Quarter: 2012Q2

REPORT INFORMATION
  Report Type: 
  Country: None (occurrence: None)
  Receive Date: 20120514
  Receipt Date: 20120507
  Transmission Date: 20120825
  Serious: Yes (Other)
  Sender: FDA-Public Use
  Company Number: PHHY2012FR027595

PATIENT
  Age: 62 Year
  Sex: Female
  Weight: 53 kg

DRUGS (3)
  1. LEVOTHYROXINE SODIUM [Concomitant]
     Dosage: 87.5 UG, QD
  2. ZOLEDRONOC ACID [Suspect]
     Indication: OSTEOPOROSIS
     Dosage: 5 MG, UNK
     Route: 042
     Dates: start: 20120302
  3. VITAMINS NOS [Concomitant]
     Dosage: UNK UKN, UNK

REACTIONS (16)
  - DEPRESSION [None]
  - DECREASED INTEREST [None]
  - BACK PAIN [None]
  - FATIGUE [None]
  - NECK PAIN [None]
  - ABDOMINAL PAIN UPPER [None]
  - DEPRESSED MOOD [None]
  - PAIN IN EXTREMITY [None]
  - PARAESTHESIA [None]
  - MYALGIA [None]
  - PYREXIA [None]
  - SUICIDAL IDEATION [None]
  - MOROSE [None]
  - FEELING ABNORMAL [None]
  - INFLUENZA LIKE ILLNESS [None]
  - BONE PAIN [None]
